FAERS Safety Report 11492170 (Version 1)
Quarter: 2015Q3

REPORT INFORMATION
  Report Type: Spontaneous
  Country: US (occurrence: None)
  Receive Date: 20150909
  Receipt Date: 20150909
  Transmission Date: 20151125
  Serious: No
  Sender: FDA-Public Use
  Company Number: None

PATIENT
  Sex: Male

DRUGS (1)
  1. LEVULAN KERASTICK [Suspect]
     Active Substance: AMINOLEVULINIC ACID HYDROCHLORIDE
     Dates: start: 201309

REACTIONS (4)
  - Herpes zoster [None]
  - Blindness unilateral [None]
  - Cerebrovascular accident [None]
  - Optic nerve injury [None]

NARRATIVE: CASE EVENT DATE: 201309
